FAERS Safety Report 12062625 (Version 2)
Quarter: 2016Q1

REPORT INFORMATION
  Report Type: Spontaneous
  Country: US (occurrence: US)
  Receive Date: 20160210
  Receipt Date: 20160219
  Transmission Date: 20160526
  Serious: No
  Sender: FDA-Public Use
  Company Number: US-BIOMARINAP-US-2016-108763

PATIENT
  Weight: 32.2 kg

DRUGS (1)
  1. KUVAN [Suspect]
     Active Substance: SAPROPTERIN DIHYDROCHLORIDE
     Indication: PHENYLKETONURIA
     Dosage: 700 MG, QD
     Route: 065
     Dates: start: 20151125

REACTIONS (1)
  - No therapeutic response [Unknown]
